FAERS Safety Report 6136464-5 (Version None)
Quarter: 2009Q1

REPORT INFORMATION
  Report Type: 
  Country: None (occurrence: None)
  Receive Date: 20090325
  Receipt Date: 20090308
  Transmission Date: 20090719
  Serious: Yes (Hospitalization)
  Sender: FDA-Public Use
  Company Number: 2005S1004629

PATIENT
  Age: 81 Year
  Sex: Female
  Weight: 57.1532 kg

DRUGS (12)
  1. PHOSPHOSODA GINGER LEMON [Suspect]
     Indication: COLONOSCOPY
     Dosage: 90 ML; TOTAL; PO
     Route: 048
     Dates: start: 20030527, end: 20030527
  2. TOPROL-XL [Concomitant]
  3. IRON SULFATETHIAMIN COMPOUND TAB [Concomitant]
  4. VITAMIN B-12 [Concomitant]
  5. LINGNISUL - MSM [Concomitant]
  6. MULTIVITAMIN /00831701/ [Concomitant]
  7. ECHINACEA /01323501/ [Concomitant]
  8. FOSAMAX [Concomitant]
  9. ASPIRIN [Concomitant]
  10. VITAMIN K /00854101/ [Concomitant]
  11. FOLIC ACID [Concomitant]
  12. ACTONEL [Concomitant]

REACTIONS (24)
  - ACIDOSIS [None]
  - ANAEMIA [None]
  - AORTIC ARTERIOSCLEROSIS [None]
  - ARTERIOSCLEROSIS [None]
  - ARTERIOSCLEROSIS CORONARY ARTERY [None]
  - ASTHENIA [None]
  - BLOOD PRESSURE INADEQUATELY CONTROLLED [None]
  - DYSPNOEA EXERTIONAL [None]
  - GASTROINTESTINAL HAEMORRHAGE [None]
  - LUNG NEOPLASM [None]
  - MULTIPLE MYELOMA [None]
  - MUSCULAR WEAKNESS [None]
  - MUSCULOSKELETAL PAIN [None]
  - NEPHROCALCINOSIS [None]
  - NEPHROPATHY [None]
  - NEPHROPATHY TOXIC [None]
  - PAIN IN EXTREMITY [None]
  - PANCREATIC CYST [None]
  - RENAL FAILURE ACUTE [None]
  - RENAL FAILURE CHRONIC [None]
  - SPLEEN DISORDER [None]
  - THIRST [None]
  - TUBULOINTERSTITIAL NEPHRITIS [None]
  - WEIGHT DECREASED [None]
